FAERS Safety Report 9299001 (Version 1)
Quarter: 2013Q2

REPORT INFORMATION
  Report Type: Report from Study
  Country: US (occurrence: US)
  Receive Date: 20130520
  Receipt Date: 20130520
  Transmission Date: 20140414
  Serious: Yes (Other)
  Sender: FDA-Public Use
  Company Number: US-ABBOTT-13P-163-1089259-00

PATIENT
  Age: 61 Year
  Sex: Female

DRUGS (15)
  1. HUMIRA [Suspect]
     Indication: RHEUMATOID ARTHRITIS
     Dates: start: 20121119, end: 201305
  2. HUMIRA [Suspect]
     Dates: start: 201305
  3. EFFEXOR XR [Concomitant]
     Indication: DEPRESSION
  4. LEFLUNOMIDE [Concomitant]
     Indication: ARTHRITIS
  5. LYRICA [Concomitant]
     Indication: FIBROMYALGIA
  6. BENZATROPINE MESILATE [Concomitant]
     Indication: TREMOR
  7. BENZATROPINE MESILATE [Concomitant]
     Indication: ADVERSE DRUG REACTION
  8. OMEPRAZOLE [Concomitant]
     Indication: GASTRIC DISORDER
  9. HYDROXYCHLOROQUINE SULFATE [Concomitant]
     Indication: ARTHRITIS
  10. MELOXICAM [Concomitant]
     Indication: ARTHRITIS
  11. CLONAZEPAM [Concomitant]
     Indication: SLEEP DISORDER
  12. PRAMIPEXOLE DIHYDROCHLORIDE [Concomitant]
     Indication: ARTHRITIS
  13. PRAMIPEXOLE DIHYDROCHLORIDE [Concomitant]
     Indication: FIBROMYALGIA
  14. RISPERIDONE [Concomitant]
     Indication: DEPRESSION
  15. DIVALPROEX [Concomitant]
     Indication: DEPRESSION

REACTIONS (8)
  - Bone fragmentation [Not Recovered/Not Resolved]
  - Arthritis [Not Recovered/Not Resolved]
  - Spinal disorder [Not Recovered/Not Resolved]
  - Joint swelling [Not Recovered/Not Resolved]
  - Pain in extremity [Not Recovered/Not Resolved]
  - Musculoskeletal stiffness [Not Recovered/Not Resolved]
  - Drug effect decreased [Not Recovered/Not Resolved]
  - Restless legs syndrome [Not Recovered/Not Resolved]
